FAERS Safety Report 14300743 (Version 1)
Quarter: 2017Q4

REPORT INFORMATION
  Report Type: Spontaneous
  Country: US (occurrence: US)
  Receive Date: 20171218
  Receipt Date: 20171218
  Transmission Date: 20180321
  Serious: No
  Sender: FDA-Public Use
  Company Number: None

PATIENT
  Age: 5 Year
  Sex: Female

DRUGS (1)
  1. FARYDAK [Suspect]
     Active Substance: PANOBINOSTAT

REACTIONS (3)
  - Muscle spasms [None]
  - Diarrhoea [None]
  - Ocular hyperaemia [None]

NARRATIVE: CASE EVENT DATE: 20171201
